FAERS Safety Report 25771100 (Version 2)
Quarter: 2025Q4

REPORT INFORMATION
  Report Type: Report from Study
  Country: US (occurrence: US)
  Receive Date: 20250908
  Receipt Date: 20251001
  Transmission Date: 20260118
  Serious: Yes (Other)
  Sender: BIOVITRUM
  Company Number: US-BIOVITRUM-2025-US-008811

PATIENT
  Age: 75 Year
  Sex: Male

DRUGS (2)
  1. KINERET [Suspect]
     Active Substance: ANAKINRA
     Indication: Rheumatoid arthritis
     Dosage: DAILY
     Route: 058
     Dates: start: 20250609, end: 202508
  2. PREDNISONE [Suspect]
     Active Substance: PREDNISONE
     Indication: Product used for unknown indication
     Dosage: 10 DAYS

REACTIONS (5)
  - Arthritis [Unknown]
  - Injection site discomfort [Unknown]
  - Injection site pain [Unknown]
  - Glaucoma [Unknown]
  - Drug ineffective [Unknown]
